FAERS Safety Report 25828308 (Version 1)
Quarter: 2025Q3

REPORT INFORMATION
  Report Type: Spontaneous
  Country: CN (occurrence: CN)
  Receive Date: 20250921
  Receipt Date: 20250921
  Transmission Date: 20251020
  Serious: Yes (Other)
  Sender: JOHNSON AND JOHNSON
  Company Number: CN-JNJFOC-20250912924

PATIENT
  Age: 43 Year
  Sex: Male
  Weight: 60 kg

DRUGS (1)
  1. STELARA [Suspect]
     Active Substance: USTEKINUMAB
     Indication: Large intestinal ulcer
     Route: 041
     Dates: start: 20250905, end: 20250905

REACTIONS (5)
  - Chest discomfort [Recovering/Resolving]
  - Rash maculo-papular [Recovering/Resolving]
  - Ear pruritus [Recovering/Resolving]
  - Dyspnoea [Recovering/Resolving]
  - Infusion related reaction [Recovering/Resolving]

NARRATIVE: CASE EVENT DATE: 20250905
